FAERS Safety Report 19241622 (Version 1)
Quarter: 2021Q2

REPORT INFORMATION
  Report Type: Spontaneous
  Country: US (occurrence: US)
  Receive Date: 20210510
  Receipt Date: 20210510
  Transmission Date: 20210717
  Serious: No
  Sender: FDA-Public Use
  Company Number: None

PATIENT
  Sex: Female

DRUGS (1)
  1. TALTZ [Suspect]
     Active Substance: IXEKIZUMAB
     Indication: PSORIATIC ARTHROPATHY
     Route: 058
     Dates: start: 202005

REACTIONS (12)
  - Facial spasm [None]
  - Dystonia [None]
  - Muscle tension dysphonia [None]
  - Torticollis [None]
  - Arthritis [None]
  - Aphonia [None]
  - Therapy interrupted [None]
  - Conversion disorder [None]
  - Sialoadenitis [None]
  - Blepharospasm [None]
  - Loss of employment [None]
  - Vocal cord thickening [None]
